FAERS Safety Report 9426895 (Version 3)
Quarter: 2013Q3

REPORT INFORMATION
  Report Type: Spontaneous
  Country: US (occurrence: US)
  Receive Date: 20130730
  Receipt Date: 20130918
  Transmission Date: 20140515
  Serious: Yes (Hospitalization, Other)
  Sender: FDA-Public Use
  Company Number: US-009507513-1204USA01796

PATIENT
  Sex: Female
  Weight: 66.21 kg

DRUGS (5)
  1. FOSAMAX [Suspect]
     Indication: OSTEOPOROSIS
     Dosage: 10 MG, QD
     Route: 048
     Dates: start: 20000118, end: 20010116
  2. FOSAMAX [Suspect]
     Dosage: 70 MG, QW
     Route: 048
     Dates: start: 20010116, end: 20051108
  3. FOSAMAX [Suspect]
     Route: 048
  4. FOSAMAX PLUS D [Suspect]
     Indication: OSTEOPOROSIS
     Dosage: 70 MG/2800 QW
     Route: 048
     Dates: start: 20061116, end: 20090110
  5. ALENDRONATE SODIUM [Suspect]
     Indication: OSTEOPOROSIS
     Dosage: 70 MG, QW
     Route: 048
     Dates: start: 20081218, end: 201006

REACTIONS (68)
  - Open reduction of fracture [Unknown]
  - Basal cell carcinoma [Unknown]
  - Hypoacusis [Unknown]
  - Cholecystectomy [Unknown]
  - Shoulder arthroplasty [Unknown]
  - Colitis [Unknown]
  - Gastroenteritis [Unknown]
  - Haemorrhagic anaemia [Unknown]
  - Haematoma [Unknown]
  - Haematoma [Unknown]
  - Bacteraemia [Unknown]
  - Catheter placement [Unknown]
  - Inappropriate antidiuretic hormone secretion [Unknown]
  - Femur fracture [Unknown]
  - Low turnover osteopathy [Unknown]
  - Dental caries [Unknown]
  - Hyperlipidaemia [Unknown]
  - Hypertension [Unknown]
  - Hypothyroidism [Unknown]
  - Coronary artery disease [Unknown]
  - Restless legs syndrome [Unknown]
  - Cold sweat [Unknown]
  - Anaemia [Recovered/Resolved]
  - Anaemia [Unknown]
  - Gastrointestinal haemorrhage [Unknown]
  - Arthroscopy [Unknown]
  - Sciatica [Unknown]
  - Myelodysplastic syndrome [Unknown]
  - Neoplasm skin [Unknown]
  - Nodule [Unknown]
  - Weight increased [Unknown]
  - Blood urine present [Unknown]
  - Cerumen impaction [Unknown]
  - Oral surgery [Unknown]
  - Lymph node calcification [Unknown]
  - Bacterial test positive [Unknown]
  - Orthostatic hypotension [Unknown]
  - Muscle strain [Unknown]
  - Meniscus injury [Unknown]
  - Osteoarthritis [Unknown]
  - Raynaud^s phenomenon [Unknown]
  - Urge incontinence [Unknown]
  - Antinuclear antibody positive [Unknown]
  - Hyperkalaemia [Unknown]
  - Rheumatoid factor positive [Unknown]
  - Inflammatory pain [Unknown]
  - Chondromalacia [Unknown]
  - Chondroplasty [Unknown]
  - Synovectomy [Unknown]
  - Synovitis [Unknown]
  - Rotator cuff syndrome [Unknown]
  - Urinary retention [Unknown]
  - Ascites [Unknown]
  - Computerised tomogram abnormal [Unknown]
  - Neutropenia [Unknown]
  - Transfusion reaction [Unknown]
  - Orthostatic hypotension [Unknown]
  - Pyrexia [Unknown]
  - Asthenia [Unknown]
  - Dizziness [Unknown]
  - Nausea [Unknown]
  - Hypocalcaemia [Unknown]
  - Bone pain [Unknown]
  - Nausea [Unknown]
  - Drug ineffective [Unknown]
  - Diarrhoea [Unknown]
  - Dyspepsia [Unknown]
  - Constipation [Unknown]
